FAERS Safety Report 7326176-4 (Version None)
Quarter: 2011Q1

REPORT INFORMATION
  Report Type: 
  Country: None (occurrence: None)
  Receive Date: 20110302
  Receipt Date: 20110216
  Transmission Date: 20110831
  Serious: Yes (Death, Hospitalization, Other)
  Sender: FDA-Public Use
  Company Number: DE-ROCHE-762066

PATIENT
  Sex: Female
  Weight: 59 kg

DRUGS (6)
  1. NICHT-STEROIDALE ANTIRHEUMATIKA (NSAID) [Concomitant]
  2. TRASTUZUMAB [Suspect]
     Route: 042
     Dates: start: 20101012
  3. PACLITAXEL [Suspect]
     Dosage: PALIATIVE THERAPY TOGETHER WITH TRASTUZUMAB
     Route: 042
     Dates: start: 20101013
  4. ZOLEDRONATE [Concomitant]
     Dates: start: 20101013
  5. TRASTUZUMAB [Suspect]
     Dosage: ADJUVANTE THERAPY
     Route: 042
     Dates: end: 20090201
  6. TRASTUZUMAB [Suspect]
     Route: 042
     Dates: start: 20101020, end: 20101103

REACTIONS (9)
  - PNEUMONIA [None]
  - FAECES DISCOLOURED [None]
  - GASTRITIS EROSIVE [None]
  - ANAEMIA OF MALIGNANT DISEASE [None]
  - GENERAL PHYSICAL HEALTH DETERIORATION [None]
  - PLEURAL EFFUSION [None]
  - OESOPHAGITIS [None]
  - THROMBOCYTOPENIA [None]
  - METASTASES TO BONE MARROW [None]
